FAERS Safety Report 4340733-9 (Version None)
Quarter: 2004Q2

REPORT INFORMATION
  Report Type: 
  Country: None (occurrence: None)
  Receive Date: 20040413
  Receipt Date: 20040401
  Transmission Date: 20050107
  Serious: Yes (Other)
  Sender: FDA-Public Use
  Company Number: HQWYE605910SEP03

PATIENT
  Age: 58 Year
  Sex: Female

DRUGS (30)
  1. METOCLOPRAMIDE [Suspect]
     Indication: GASTROOESOPHAGEAL REFLUX DISEASE
     Dosage: ESI LABERLE, ORAL
     Route: 048
     Dates: start: 19981027, end: 20011112
  2. METOCLOPRAMIDE [Suspect]
     Indication: GASTROOESOPHAGEAL REFLUX DISEASE
     Dosage: ORAL
     Route: 048
     Dates: start: 19980215, end: 19980101
  3. METOCLOPRAMIDE [Suspect]
     Indication: GASTROOESOPHAGEAL REFLUX DISEASE
     Dosage: ORAL
     Route: 048
     Dates: start: 20011113, end: 20020102
  4. METOCLOPRAMIDE [Suspect]
     Indication: GASTROOESOPHAGEAL REFLUX DISEASE
     Dosage: ORAL
     Route: 048
     Dates: start: 20030103, end: 20020409
  5. REGLAND(METOCLOPRAMIDE HYDROCHLORIDE, TABLET) [Suspect]
     Indication: GASTROOESOPHAGEAL REFLUX DISEASE
     Dosage: ORAL
     Route: 048
  6. SEROQUEL [Suspect]
     Indication: MOOD ALTERED
     Dosage: SEE IMAGE
     Dates: start: 19981112, end: 19981113
  7. SEROQUEL [Suspect]
     Indication: MOOD ALTERED
     Dosage: SEE IMAGE
     Dates: start: 19981114, end: 19981119
  8. SEROQUEL [Suspect]
     Indication: MOOD ALTERED
     Dosage: SEE IMAGE
     Dates: start: 19981120
  9. ZANTAC [Concomitant]
  10. DRIXORAL (DEXBROMPHENIRAMINE MALEATE/PSEUDOEPHEDRINE SULFATE) [Concomitant]
  11. BAYER CHILDREN'S ASPIRIN (ACETYLSALICYLIC ACID) [Concomitant]
  12. ATIVAN [Concomitant]
  13. LITHOBID [Concomitant]
  14. PREMARIN [Concomitant]
  15. SENOKOT [Concomitant]
  16. HUMALOG [Concomitant]
  17. EFFEXOR XR [Concomitant]
  18. VERELAN (VERPAMIL HYDROCHLORIDE) [Concomitant]
  19. PROCARDIA XL [Concomitant]
  20. LANTUS [Concomitant]
  21. PREVACID [Concomitant]
  22. ZOLOFT [Concomitant]
  23. DETROL [Concomitant]
  24. NEURONTIN [Concomitant]
  25. CIPRO [Concomitant]
  26. ALTACE [Concomitant]
  27. PRANDIN [Concomitant]
  28. MAALOX (ALUMINIUM HYDROXIDE GEL/MAGNESIUM HYDROXIDE) [Concomitant]
  29. BENTYL [Concomitant]
  30. BENADRYL [Concomitant]

REACTIONS (20)
  - ABDOMINAL PAIN [None]
  - APATHY [None]
  - ASTHENIA [None]
  - CONDITION AGGRAVATED [None]
  - DRY MOUTH [None]
  - DYSPHAGIA [None]
  - DYSTONIA [None]
  - ESSENTIAL TREMOR [None]
  - FATIGUE [None]
  - GASTROOESOPHAGEAL REFLUX DISEASE [None]
  - HALLUCINATION [None]
  - HYPERSOMNIA [None]
  - INSOMNIA [None]
  - MOOD ALTERED [None]
  - SOCIAL AVOIDANT BEHAVIOUR [None]
  - SPEECH DISORDER [None]
  - TARDIVE DYSKINESIA [None]
  - THROAT TIGHTNESS [None]
  - TONGUE DISORDER [None]
  - WEIGHT LOSS POOR [None]
